FAERS Safety Report 6317138-4 (Version None)
Quarter: 2009Q3

REPORT INFORMATION
  Report Type: 
  Country: None (occurrence: None)
  Receive Date: 20090819
  Receipt Date: 20090806
  Transmission Date: 20100115
  Serious: Yes (Life-Threatening, Hospitalization)
  Sender: FDA-Public Use
  Company Number: 238487K09USA

PATIENT
  Age: 49 Year
  Sex: Female

DRUGS (1)
  1. REBIF [Suspect]
     Indication: MULTIPLE SCLEROSIS
     Dosage: 44 MCG, 3 IN 1 WEEKS, SUBCUTANEOUS
     Route: 058
     Dates: start: 20090317, end: 20090630

REACTIONS (13)
  - ABDOMINAL SEPSIS [None]
  - ANAEMIA [None]
  - DEVICE MIGRATION [None]
  - DYSPNOEA [None]
  - ESCHERICHIA INFECTION [None]
  - HYPOVOLAEMIC SHOCK [None]
  - IATROGENIC INJURY [None]
  - PROCEDURAL COMPLICATION [None]
  - PULMONARY THROMBOSIS [None]
  - RENAL FAILURE ACUTE [None]
  - SEPTIC SHOCK [None]
  - SMALL INTESTINAL PERFORATION [None]
  - THROMBOSIS [None]
